FAERS Safety Report 22098350 (Version 2)
Quarter: 2023Q2

REPORT INFORMATION
  Report Type: Report from Study
  Country: MY (occurrence: MY)
  Receive Date: 20230315
  Receipt Date: 20230508
  Transmission Date: 20230722
  Serious: Yes (Death, Other)
  Sender: FDA-Public Use
  Company Number: MY-002147023-NVSC2023MY059488

PATIENT
  Age: 3 Year
  Sex: Female

DRUGS (1)
  1. GLIVEC [Suspect]
     Active Substance: IMATINIB MESYLATE
     Indication: Blast crisis in myelogenous leukaemia
     Dosage: 200 MG, QD (DURATION OF EXPOSURE - 20 MONTHS)
     Route: 048
     Dates: start: 20210615, end: 20230131

REACTIONS (4)
  - Blast crisis in myelogenous leukaemia [Fatal]
  - Malignant neoplasm progression [Fatal]
  - Fungal infection [Unknown]
  - Therapeutic response decreased [Unknown]

NARRATIVE: CASE EVENT DATE: 20211001
